FAERS Safety Report 4369907-8 (Version None)
Quarter: 2004Q2

REPORT INFORMATION
  Report Type: 
  Country: None (occurrence: None)
  Receive Date: 20040527
  Receipt Date: 20040503
  Transmission Date: 20050107
  Serious: Yes (Death)
  Sender: FDA-Public Use
  Company Number: MK200405-0304-1

PATIENT
  Age: 37 Year

DRUGS (3)
  1. METHADOSE (METHADONE HCL OR. CONC. USP), 10MG/ML [Suspect]
  2. ACETAMINOPHEN [Concomitant]
  3. CARISOPRODOL [Concomitant]

REACTIONS (2)
  - COMPLETED SUICIDE [None]
  - OVERDOSE [None]
